FAERS Safety Report 7611514-5 (Version None)
Quarter: 2011Q3

REPORT INFORMATION
  Report Type: 
  Country: None (occurrence: None)
  Receive Date: 20110715
  Receipt Date: 20110707
  Transmission Date: 20111222
  Serious: Yes (Other)
  Sender: FDA-Public Use
  Company Number: US-PFIZER INC-2011154113

PATIENT
  Sex: Female
  Weight: 65.8 kg

DRUGS (4)
  1. CALCIUM [Concomitant]
     Indication: MEDICAL DIET
     Dosage: UNK
  2. CLEOCIN HYDROCHLORIDE [Suspect]
     Indication: VAGINAL INFECTION
     Dosage: 100 MG, UNK
     Route: 067
     Dates: start: 20110706, end: 20110706
  3. DIFLUCAN [Suspect]
     Indication: VAGINAL INFECTION
     Dosage: 150 MG, UNK
     Dates: start: 20110706
  4. VITAMIN TAB [Concomitant]
     Indication: MEDICAL DIET
     Dosage: UNK

REACTIONS (3)
  - RASH [None]
  - SKIN BURNING SENSATION [None]
  - SKIN REACTION [None]
